FAERS Safety Report 7913743-X (Version None)
Quarter: 2011Q4

REPORT INFORMATION
  Report Type: 
  Country: None (occurrence: None)
  Receive Date: 20111115
  Receipt Date: 20111111
  Transmission Date: 20120403
  Serious: Yes (Life-Threatening, Other)
  Sender: FDA-Public Use
  Company Number: CA-JNJFOC-20111012206

PATIENT
  Age: 69 Year
  Sex: Female

DRUGS (6)
  1. REOPRO [Suspect]
     Indication: ACUTE MYOCARDIAL INFARCTION
     Route: 065
     Dates: start: 20111003
  2. REOPRO [Suspect]
     Route: 042
     Dates: start: 20111010, end: 20111010
  3. REOPRO [Suspect]
     Route: 022
     Dates: start: 20111010, end: 20111010
  4. HEPARIN [Suspect]
     Indication: ACUTE MYOCARDIAL INFARCTION
     Route: 065
     Dates: start: 20111003, end: 20111005
  5. PLAVIX [Suspect]
     Indication: PRODUCT USED FOR UNKNOWN INDICATION
     Route: 065
     Dates: end: 20111005
  6. PLAVIX [Suspect]
     Route: 065
     Dates: start: 20111006

REACTIONS (8)
  - HAEMORRHAGIC TRANSFORMATION STROKE [None]
  - HAEMORRHAGE [None]
  - THROMBOSIS [None]
  - ISCHAEMIC STROKE [None]
  - MYOCARDIAL INFARCTION [None]
  - INJECTION SITE HAEMORRHAGE [None]
  - PLATELET COUNT DECREASED [None]
  - INCORRECT ROUTE OF DRUG ADMINISTRATION [None]
